FAERS Safety Report 10088398 (Version 2)
Quarter: 2014Q2

REPORT INFORMATION
  Report Type: Spontaneous
  Country: US (occurrence: US)
  Receive Date: 20140421
  Receipt Date: 20140526
  Transmission Date: 20141212
  Serious: No
  Sender: FDA-Public Use
  Company Number: US-BIOGENIDEC-2014BI031232

PATIENT
  Sex: Male

DRUGS (2)
  1. TECFIDERA [Suspect]
     Indication: MULTIPLE SCLEROSIS
     Dates: start: 20140128
  2. TECFIDERA [Suspect]
     Indication: MULTIPLE SCLEROSIS

REACTIONS (12)
  - Herpes zoster [Not Recovered/Not Resolved]
  - Fatigue [Not Recovered/Not Resolved]
  - Dysphemia [Not Recovered/Not Resolved]
  - Hypoaesthesia [Recovered/Resolved with Sequelae]
  - Adverse event [Unknown]
  - Mental impairment [Not Recovered/Not Resolved]
  - General symptom [Not Recovered/Not Resolved]
  - Abdominal pain [Recovered/Resolved]
  - Flushing [Recovered/Resolved]
  - Hot flush [Recovered/Resolved]
  - Vomiting [Recovered/Resolved]
  - Diarrhoea [Recovered/Resolved]
